FAERS Safety Report 12140807 (Version 1)
Quarter: 2016Q1

REPORT INFORMATION
  Report Type: Report from Study
  Country: BE (occurrence: GB)
  Receive Date: 20160303
  Receipt Date: 20160303
  Transmission Date: 20160526
  Serious: Yes (Hospitalization)
  Sender: FDA-Public Use
  Company Number: BE-SA-2015SA085665

PATIENT
  Age: 36 Year
  Sex: Female

DRUGS (2)
  1. LEMTRADA [Suspect]
     Active Substance: ALEMTUZUMAB
     Route: 042
     Dates: start: 20150319, end: 20150321
  2. LEMTRADA [Suspect]
     Active Substance: ALEMTUZUMAB
     Route: 042
     Dates: start: 20150322, end: 20150323

REACTIONS (2)
  - Sensory disturbance [Unknown]
  - Rash [Recovered/Resolved]

NARRATIVE: CASE EVENT DATE: 20150321
